FAERS Safety Report 5689298-X (Version None)
Quarter: 2008Q1

REPORT INFORMATION
  Report Type: 
  Country: None (occurrence: None)
  Receive Date: 20080331
  Receipt Date: 20080320
  Transmission Date: 20080703
  Serious: Yes (Other)
  Sender: FDA-Public Use
  Company Number: FR-BOEHRINGER INGELHEIM GMBH, GERMANY-2008-FF-00225FF

PATIENT
  Sex: Male

DRUGS (1)
  1. APTIVUS [Suspect]

REACTIONS (4)
  - HEPATITIS [None]
  - HEPATITIS B [None]
  - JAUNDICE [None]
  - TRANSAMINASES INCREASED [None]
